FAERS Safety Report 6021797-3 (Version None)
Quarter: 2008Q4

REPORT INFORMATION
  Report Type: 
  Country: None (occurrence: None)
  Receive Date: 20081229
  Receipt Date: 20081223
  Transmission Date: 20090506
  Serious: Yes (Other)
  Sender: FDA-Public Use
  Company Number: CH-WYE-H07419308

PATIENT
  Age: 1 Day

DRUGS (5)
  1. ZURCAL [Suspect]
     Dosage: UNKNOWN
     Route: 064
  2. AMITRIPTYLINE HCL [Suspect]
     Indication: DEPRESSION
     Route: 064
     Dates: end: 20080601
  3. TEMESTA [Suspect]
     Indication: DEPRESSION
     Route: 064
  4. TEMESTA [Suspect]
     Route: 064
  5. BISOPROLOL FUMARATE [Suspect]
     Indication: HYPERTENSION
     Route: 064

REACTIONS (2)
  - DRUG EXPOSURE DURING PREGNANCY [None]
  - FOETAL GROWTH RETARDATION [None]
